FAERS Safety Report 6125795-0 (Version None)
Quarter: 2009Q1

REPORT INFORMATION
  Report Type: 
  Country: None (occurrence: None)
  Receive Date: 20090320
  Receipt Date: 20090313
  Transmission Date: 20090719
  Serious: Yes (Other)
  Sender: FDA-Public Use
  Company Number: JP-JNJFOC-20090303688

PATIENT
  Age: 8 Year
  Sex: Female
  Weight: 17.7 kg

DRUGS (2)
  1. REMICADE [Suspect]
     Indication: CROHN'S DISEASE
     Route: 042
  2. MESALAZINE [Concomitant]
     Indication: INFLAMMATORY BOWEL DISEASE
     Route: 048

REACTIONS (2)
  - JAUNDICE CHOLESTATIC [None]
  - PANCREATIC ENLARGEMENT [None]
